FAERS Safety Report 4962930-1 (Version None)
Quarter: 2006Q1

REPORT INFORMATION
  Report Type: 
  Country: None (occurrence: None)
  Receive Date: 20060331
  Receipt Date: 20060315
  Transmission Date: 20060701
  Serious: Yes (Hospitalization)
  Sender: FDA-Public Use
  Company Number: US200603004117

PATIENT
  Sex: Female
  Weight: 49.9 kg

DRUGS (3)
  1. HUMALOG [Suspect]
     Indication: DIABETES MELLITUS
     Dosage: AS NEEDED
  2. HUMULIN R [Suspect]
     Indication: DIABETES MELLITUS
     Dosage: EACH EVENING
  3. LANTUS [Concomitant]

REACTIONS (8)
  - BACK PAIN [None]
  - BLOOD GLUCOSE INCREASED [None]
  - DIABETIC COMPLICATION [None]
  - NERVE COMPRESSION [None]
  - PAIN IN EXTREMITY [None]
  - PHARMACEUTICAL PRODUCT COMPLAINT [None]
  - THERAPEUTIC RESPONSE DECREASED [None]
  - URINARY RETENTION [None]
